FAERS Safety Report 10167609 (Version 1)
Quarter: 2014Q2

REPORT INFORMATION
  Report Type: Report from Study
  Country: US (occurrence: US)
  Receive Date: 20140512
  Receipt Date: 20140512
  Transmission Date: 20141212
  Serious: Yes (Hospitalization)
  Sender: FDA-Public Use
  Company Number: US-ABBVIE-14P-163-1234704-00

PATIENT
  Age: 23 Year
  Sex: Male

DRUGS (3)
  1. HUMIRA [Suspect]
     Indication: CROHN^S DISEASE
     Route: 058
     Dates: start: 20140405, end: 20140405
  2. HUMIRA [Suspect]
     Route: 058
     Dates: start: 20140419, end: 201405
  3. IMURAN [Concomitant]
     Indication: CROHN^S DISEASE

REACTIONS (1)
  - Large intestinal obstruction [Recovering/Resolving]
